FAERS Safety Report 21334804 (Version 1)
Quarter: 2022Q3

REPORT INFORMATION
  Report Type: Spontaneous
  Country: US (occurrence: US)
  Receive Date: 20220914
  Receipt Date: 20220914
  Transmission Date: 20221027
  Serious: No
  Sender: FDA-Public Use
  Company Number: US-PADAGIS-2022PAD00341

PATIENT

DRUGS (1)
  1. TESTOSTERONE [Suspect]
     Active Substance: TESTOSTERONE
     Indication: Gender dysphoria
     Dosage: UNK
     Route: 065

REACTIONS (3)
  - Endometrial neoplasm [Unknown]
  - Amenorrhoea [Unknown]
  - Product use in unapproved indication [Unknown]
